FAERS Safety Report 4727801-4 (Version None)
Quarter: 2005Q3

REPORT INFORMATION
  Report Type: 
  Country: None (occurrence: None)
  Receive Date: 20050728
  Receipt Date: 20050622
  Transmission Date: 20060218
  Serious: Yes (Hospitalization)
  Sender: FDA-Public Use
  Company Number: DE-MERCK-0506DEU00184

PATIENT
  Age: 63 Year
  Sex: Male

DRUGS (8)
  1. ZOCOR [Suspect]
     Indication: HYPERCHOLESTEROLAEMIA
     Route: 048
     Dates: start: 20050531, end: 20050621
  2. ZOCOR [Suspect]
     Indication: HYPERLIPIDAEMIA
     Route: 048
     Dates: start: 20050531, end: 20050621
  3. VANCOMYCIN [Concomitant]
     Indication: PERITONITIS
     Route: 051
     Dates: start: 20050611, end: 20050620
  4. PRIMAXIN [Concomitant]
     Indication: PERITONITIS
     Route: 051
     Dates: start: 20050611, end: 20050615
  5. PRIMAXIN [Concomitant]
     Route: 051
     Dates: start: 20050619, end: 20050620
  6. METRONIDAZOLE [Concomitant]
     Route: 065
  7. PANTOPRAZOLE SODIUM [Concomitant]
     Route: 065
  8. FLUCONAZOLE [Concomitant]
     Indication: PERITONITIS
     Route: 051
     Dates: start: 20050612, end: 20050615

REACTIONS (2)
  - AORTIC ANEURYSM [None]
  - RHABDOMYOLYSIS [None]
